FAERS Safety Report 13057158 (Version 1)
Quarter: 2016Q4

REPORT INFORMATION
  Report Type: Report from Study
  Country: CA (occurrence: CA)
  Receive Date: 20161222
  Receipt Date: 20161222
  Transmission Date: 20170207
  Serious: Yes (Hospitalization, Other)
  Sender: FDA-Public Use
  Company Number: CA-AMGEN-CANSL2016168493

PATIENT
  Age: 82 Year
  Sex: Female
  Weight: 72.56 kg

DRUGS (5)
  1. PROLIA [Suspect]
     Active Substance: DENOSUMAB
     Dosage: 1.0 ML, UNK
     Route: 058
     Dates: start: 20151116
  2. TYLENOL [Concomitant]
     Active Substance: ACETAMINOPHEN
     Dosage: UNK
  3. PROLIA [Suspect]
     Active Substance: DENOSUMAB
     Dosage: 1.0 ML, UNK
     Route: 058
     Dates: start: 20150621
  4. PROLIA [Suspect]
     Active Substance: DENOSUMAB
     Dosage: 1.0 ML, UNK
     Route: 058
     Dates: start: 20150512
  5. PROLIA [Suspect]
     Active Substance: DENOSUMAB
     Indication: PRODUCT USED FOR UNKNOWN INDICATION
     Dosage: 1.0 ML, UNK
     Route: 058
     Dates: start: 20141118

REACTIONS (1)
  - Osteoarthritis [Recovered/Resolved]
